FAERS Safety Report 6981946-7 (Version None)
Quarter: 2010Q3

REPORT INFORMATION
  Report Type: 
  Country: None (occurrence: None)
  Receive Date: 20100914
  Receipt Date: 20091106
  Transmission Date: 20110219
  Serious: No
  Sender: FDA-Public Use
  Company Number: US-PFIZER INC-2009273105

PATIENT
  Age: 53 Year
  Sex: Female
  Weight: 47.6 kg

DRUGS (2)
  1. LYRICA [Suspect]
     Indication: HERPES ZOSTER
     Dosage: 75 MG, 1X/DAY
     Route: 048
     Dates: start: 20090601
  2. LYRICA [Suspect]
     Indication: FIBROMYALGIA

REACTIONS (2)
  - HEADACHE [None]
  - TREMOR [None]
